FAERS Safety Report 23470446 (Version 1)
Quarter: 2024Q1

REPORT INFORMATION
  Report Type: Spontaneous
  Country: US (occurrence: None)
  Receive Date: 20240201
  Receipt Date: 20240201
  Transmission Date: 20240410
  Serious: Yes (Life-Threatening, Hospitalization, Disabling)
  Sender: FDA-Public Use
  Company Number: None

PATIENT
  Age: 28 Year
  Sex: Male
  Weight: 85.5 kg

DRUGS (4)
  1. INVEGA SUSTENNA [Suspect]
     Active Substance: PALIPERIDONE PALMITATE
  2. HALDOL [Suspect]
     Active Substance: HALOPERIDOL
  3. HYDROXYZINE [Suspect]
     Active Substance: HYDROXYZINE HYDROCHLORIDE
  4. FLUOXETINE [Suspect]
     Active Substance: FLUOXETINE HYDROCHLORIDE

REACTIONS (7)
  - Legal problem [None]
  - Victim of abuse [None]
  - General physical health deterioration [None]
  - Economic problem [None]
  - Abnormal behaviour [None]
  - Quality of life decreased [None]
  - Family stress [None]

NARRATIVE: CASE EVENT DATE: 20160504
